FAERS Safety Report 5514048-7 (Version None)
Quarter: 2007Q4

REPORT INFORMATION
  Report Type: 
  Country: None (occurrence: None)
  Receive Date: 20071109
  Receipt Date: 20071109
  Transmission Date: 20080405
  Serious: Yes (Hospitalization, Other)
  Sender: FDA-Public Use
  Company Number: None

PATIENT
  Age: 45 Year
  Sex: Female
  Weight: 172.5 kg

DRUGS (7)
  1. FLUCONAZOLE [Suspect]
     Indication: ABSCESS
     Dosage: 150MG DAILY PO
     Route: 048
     Dates: start: 20070222, end: 20070226
  2. LEVOFLOXACIN [Suspect]
     Indication: ABSCESS
     Dosage: 750MG DAILY PO
     Route: 048
     Dates: start: 20070222, end: 20070226
  3. LISINOPRIL [Concomitant]
  4. CLINDAMYCIN [Concomitant]
  5. GLYBURIDE [Concomitant]
  6. IBUPROFEN TABLETS [Concomitant]
  7. FUROSEMIDE [Concomitant]

REACTIONS (3)
  - CHEST PAIN [None]
  - HEPATITIS [None]
  - SEPSIS [None]
